FAERS Safety Report 10112271 (Version 3)
Quarter: 2014Q2

REPORT INFORMATION
  Report Type: Spontaneous
  Country: JP (occurrence: JP)
  Receive Date: 20140425
  Receipt Date: 20140516
  Transmission Date: 20141212
  Serious: Yes (Hospitalization)
  Sender: FDA-Public Use
  Company Number: JP-LUNDBECK-DKLU1099494

PATIENT
  Age: 8 Month
  Sex: Female

DRUGS (5)
  1. VIGABATRIN (FOR ORAL SOLUTION) [Suspect]
     Indication: INFANTILE SPASMS
  2. VIGABATRIN (FOR ORAL SOLUTION) [Suspect]
  3. VIGABATRIN (FOR ORAL SOLUTION) [Suspect]
  4. VALPROIC ACID [Concomitant]
     Indication: EPILEPSY
  5. VALPROIC ACID [Concomitant]
     Indication: PRODUCT USED FOR UNKNOWN INDICATION

REACTIONS (3)
  - Sleep disorder [Recovered/Resolved]
  - Psychomotor hyperactivity [Recovered/Resolved]
  - Irritability [Recovered/Resolved]
